FAERS Safety Report 15390228 (Version 3)
Quarter: 2019Q2

REPORT INFORMATION
  Report Type: Report from Study
  Country: IN (occurrence: IN)
  Receive Date: 20180917
  Receipt Date: 20190627
  Transmission Date: 20190711
  Serious: Yes (Death, Other)
  Sender: FDA-Public Use
  Company Number: PHHY2018IN094439

PATIENT
  Age: 53 Year
  Sex: Female
  Weight: 64 kg

DRUGS (5)
  1. SPEXIB [Suspect]
     Active Substance: CERITINIB
     Dosage: 450 MG, QD
     Route: 048
     Dates: start: 20180618, end: 20180708
  2. SPEXIB [Suspect]
     Active Substance: CERITINIB
     Dosage: 450 MG ALTERNATE DAY WITH 300 MG OD
     Route: 048
     Dates: start: 20180709, end: 20190324
  3. SPEXIB [Suspect]
     Active Substance: CERITINIB
     Dosage: 300 MG, QD
     Route: 048
     Dates: start: 20180708
  4. SPEXIB [Suspect]
     Active Substance: CERITINIB
     Indication: NON-SMALL CELL LUNG CANCER
     Dosage: 450 MG, QD
     Route: 048
     Dates: start: 20100608
  5. SPEXIB [Suspect]
     Active Substance: CERITINIB
     Dosage: 300  MG OD ALTERNATE WITH 150 MG OD
     Route: 048
     Dates: start: 20190325

REACTIONS (8)
  - Headache [Recovered/Resolved]
  - Hyperchlorhydria [Not Recovered/Not Resolved]
  - Malignant neoplasm progression [Fatal]
  - Neck pain [Not Recovered/Not Resolved]
  - Non-small cell lung cancer [Fatal]
  - Vomiting [Not Recovered/Not Resolved]
  - Asthenia [Not Recovered/Not Resolved]
  - Inappropriate schedule of product administration [Unknown]

NARRATIVE: CASE EVENT DATE: 2018
